FAERS Safety Report 10317012 (Version 2)
Quarter: 2014Q3

REPORT INFORMATION
  Report Type: Other
  Country: US (occurrence: US)
  Receive Date: 20140719
  Receipt Date: 20140719
  Transmission Date: 20150326
  Serious: Yes (Hospitalization, Other)
  Sender: FDA-Public Use
  Company Number: US-GSKPPD-2014GSK001874

PATIENT
  Age: 61 Year
  Sex: Female

DRUGS (10)
  1. SPIRONOLACTONE. [Concomitant]
     Active Substance: SPIRONOLACTONE
  2. ENALAPRIL [Concomitant]
     Active Substance: ENALAPRIL
  3. DIOVAN [Concomitant]
     Active Substance: VALSARTAN
  4. LASIX [Concomitant]
     Active Substance: FUROSEMIDE
  5. COREG [Concomitant]
     Active Substance: CARVEDILOL
  6. AVANDIA [Suspect]
     Active Substance: ROSIGLITAZONE MALEATE
     Indication: DIABETES MELLITUS
     Route: 048
  7. METOPROLOL [Concomitant]
     Active Substance: METOPROLOL
  8. ZOCOR [Concomitant]
     Active Substance: SIMVASTATIN
  9. PLAVIX [Concomitant]
     Active Substance: CLOPIDOGREL BISULFATE
  10. NITROGLYCERIN. [Suspect]
     Active Substance: NITROGLYCERIN

REACTIONS (1)
  - Cardiac failure congestive [Recovered/Resolved]

NARRATIVE: CASE EVENT DATE: 20051218
